FAERS Safety Report 11950069 (Version 1)
Quarter: 2016Q1

REPORT INFORMATION
  Report Type: Other
  Country: US (occurrence: US)
  Receive Date: 20160125
  Receipt Date: 20160125
  Transmission Date: 20160526
  Serious: Yes (Death)
  Sender: FDA-Public Use
  Company Number: US-LEHIGH_VALLEY-USA-POI0580201600015

PATIENT
  Age: 32 Year
  Sex: Male

DRUGS (13)
  1. METFORMIN [Suspect]
     Active Substance: METFORMIN HYDROCHLORIDE
     Dates: end: 2014
  2. MORPHINE [Suspect]
     Active Substance: MORPHINE
     Dates: end: 2014
  3. ACETAMINOPHEN WITH HYDROCODONE [Suspect]
     Active Substance: ACETAMINOPHEN\HYDROCODONE
     Dates: end: 2014
  4. METHADONE [Suspect]
     Active Substance: METHADONE HYDROCHLORIDE
     Dates: end: 2014
  5. ALPRAZOLAM. [Suspect]
     Active Substance: ALPRAZOLAM
     Dates: end: 2014
  6. LEVOTHYROXINE. [Suspect]
     Active Substance: LEVOTHYROXINE
     Dates: end: 2014
  7. NAPROXEN. [Suspect]
     Active Substance: NAPROXEN
     Dates: end: 2014
  8. CLONAZEPAM. [Suspect]
     Active Substance: CLONAZEPAM
     Dates: end: 2014
  9. OXYCODONE HCL CAPSULES [Suspect]
     Active Substance: OXYCODONE HYDROCHLORIDE
     Dates: end: 2014
  10. FLUOXETINE [Suspect]
     Active Substance: FLUOXETINE HYDROCHLORIDE
     Dates: end: 2014
  11. DIAZEPAM. [Suspect]
     Active Substance: DIAZEPAM
     Dates: end: 2014
  12. IBUPROFEN. [Suspect]
     Active Substance: IBUPROFEN
     Dates: end: 2014
  13. QUETIAPINE [Suspect]
     Active Substance: QUETIAPINE
     Dates: end: 2014

REACTIONS (1)
  - Completed suicide [Fatal]

NARRATIVE: CASE EVENT DATE: 2014
